FAERS Safety Report 12666440 (Version 2)
Quarter: 2016Q3

REPORT INFORMATION
  Report Type: Spontaneous
  Country: US (occurrence: US)
  Receive Date: 20160818
  Receipt Date: 20160904
  Transmission Date: 20161109
  Serious: Yes (Other)
  Sender: FDA-Public Use
  Company Number: US-BEH-2016072683

PATIENT
  Sex: Female

DRUGS (1)
  1. HIZENTRA [Suspect]
     Active Substance: HUMAN IMMUNOGLOBULIN G
     Indication: PRODUCT USED FOR UNKNOWN INDICATION
     Dosage: 18.5 G, QW
     Route: 058

REACTIONS (9)
  - Bronchitis viral [Unknown]
  - Pain [Unknown]
  - Pyrexia [Unknown]
  - Sinusitis [Not Recovered/Not Resolved]
  - Stomach mass [Unknown]
  - Drug ineffective [Unknown]
  - Abdominal pain upper [Unknown]
  - Headache [Unknown]
  - Intervertebral disc protrusion [Unknown]

NARRATIVE: CASE EVENT DATE: 20160815
